FAERS Safety Report 25804437 (Version 2)
Quarter: 2025Q4

REPORT INFORMATION
  Report Type: Spontaneous
  Country: US (occurrence: US)
  Receive Date: 20250915
  Receipt Date: 20251128
  Transmission Date: 20260118
  Serious: Yes (Other)
  Sender: PFIZER
  Company Number: US-PFIZER INC-PV202300031907

PATIENT
  Age: 85 Year
  Sex: Female

DRUGS (3)
  1. IBRANCE [Suspect]
     Active Substance: PALBOCICLIB
     Indication: Hormone receptor positive HER2 negative breast cancer
     Dosage: 125 MG FOR 21 DAYS THEN OFF 7 DAYS (EVERY MORNING AT 10 AM)
     Route: 048
     Dates: start: 20230203
  2. IBRANCE [Suspect]
     Active Substance: PALBOCICLIB
     Indication: Breast cancer female
     Dosage: UNK, (RESTARTED)
  3. IBRANCE [Suspect]
     Active Substance: PALBOCICLIB
     Dosage: 125MG  TABLETS, 1 TABLET DAILY FOR 21 DAYS ON AND 7 DAYS OFF

REACTIONS (3)
  - Breast cancer metastatic [Recovering/Resolving]
  - Breast cancer recurrent [Recovering/Resolving]
  - Eye disorder [Unknown]
